FAERS Safety Report 7230040-9 (Version None)
Quarter: 2011Q1

REPORT INFORMATION
  Report Type: 
  Country: None (occurrence: None)
  Receive Date: 20110118
  Receipt Date: 20110111
  Transmission Date: 20110831
  Serious: Yes (Hospitalization)
  Sender: FDA-Public Use
  Company Number: US-BIOGENIDEC-2011BI000420

PATIENT
  Age: 33 Year
  Sex: Female
  Weight: 61 kg

DRUGS (6)
  1. TOPAMAX [Concomitant]
     Indication: MIGRAINE
     Route: 048
  2. ASCORBIC ACID [Concomitant]
     Route: 048
  3. AVONEX [Suspect]
     Indication: MULTIPLE SCLEROSIS
     Route: 030
     Dates: start: 20101001, end: 20101210
  4. VITAMIN D [Concomitant]
  5. AMBIEN [Concomitant]
     Indication: SLEEP DISORDER
     Route: 048
  6. HYDROCODONE [Concomitant]
     Indication: NEUROPATHY PERIPHERAL
     Route: 048

REACTIONS (1)
  - PULMONARY EMBOLISM [None]
